FAERS Safety Report 25318644 (Version 2)
Quarter: 2025Q3

REPORT INFORMATION
  Report Type: Spontaneous
  Country: US (occurrence: US)
  Receive Date: 20250515
  Receipt Date: 20250714
  Transmission Date: 20251021
  Serious: No
  Sender: BRISTOL-MYERS SQUIBB COMPANY
  Company Number: US-BRISTOL-MYERS SQUIBB COMPANY-2025-070457

PATIENT
  Age: 67 Year
  Sex: Female
  Weight: 68.49 kg

DRUGS (2)
  1. REVLIMID [Suspect]
     Active Substance: LENALIDOMIDE
     Indication: Plasma cell myeloma in remission
     Route: 048
  2. REVLIMID [Suspect]
     Active Substance: LENALIDOMIDE
     Dosage: STRENGTH: 2.5 MG
     Route: 048

REACTIONS (4)
  - Pruritus [Recovering/Resolving]
  - White blood cell count decreased [Recovering/Resolving]
  - Pain [Recovering/Resolving]
  - Fatigue [Not Recovered/Not Resolved]
